FAERS Safety Report 6939515-0 (Version None)
Quarter: 2010Q3

REPORT INFORMATION
  Report Type: 
  Country: None (occurrence: None)
  Receive Date: 20100819
  Receipt Date: 20100709
  Transmission Date: 20110219
  Serious: Yes (Hospitalization)
  Sender: FDA-Public Use
  Company Number: 2010003335

PATIENT
  Age: 68 Year
  Sex: Male

DRUGS (11)
  1. ERLOTINIB HYDROCHLORIDE [Suspect]
     Indication: HEPATIC NEOPLASM MALIGNANT
     Dosage: 150 MG, QD, ORAL, 100 MG, QD, ORAL, 100 MG, QD, ORAL
     Route: 048
     Dates: start: 20100222, end: 20100315
  2. ERLOTINIB HYDROCHLORIDE [Suspect]
     Indication: HEPATIC NEOPLASM MALIGNANT
     Dosage: 150 MG, QD, ORAL, 100 MG, QD, ORAL, 100 MG, QD, ORAL
     Route: 048
     Dates: start: 20100323, end: 20100505
  3. ERLOTINIB HYDROCHLORIDE [Suspect]
     Indication: HEPATIC NEOPLASM MALIGNANT
     Dosage: 150 MG, QD, ORAL, 100 MG, QD, ORAL, 100 MG, QD, ORAL
     Route: 048
     Dates: start: 20100519, end: 20100628
  4. SORAFENIB [Suspect]
     Indication: HEPATIC NEOPLASM MALIGNANT
     Dosage: 800 MG, QD, ORAL, 400 MG, QD, ORAL
     Route: 048
     Dates: start: 20100222, end: 20100315
  5. SORAFENIB [Suspect]
     Indication: HEPATIC NEOPLASM MALIGNANT
     Dosage: 800 MG, QD, ORAL, 400 MG, QD, ORAL
     Route: 048
     Dates: start: 20100323, end: 20100505
  6. SORAFENIB [Suspect]
     Indication: HEPATIC NEOPLASM MALIGNANT
     Dosage: 800 MG, QD, ORAL, 400 MG, QD, ORAL
     Route: 048
     Dates: start: 20100519, end: 20100628
  7. ARIXTRA [Concomitant]
  8. AUGMENTIN '125' [Concomitant]
  9. DICLOFENAC SODIUM [Concomitant]
  10. NEOMYCIN [Concomitant]
  11. DOBENDAN (CETYLPYRIDINIUM CHLORIDE) [Concomitant]

REACTIONS (2)
  - CLOSTRIDIUM DIFFICILE COLITIS [None]
  - ENTEROCOLITIS INFECTIOUS [None]
